FAERS Safety Report 4585397-4 (Version None)
Quarter: 2005Q1

REPORT INFORMATION
  Report Type: 
  Country: None (occurrence: None)
  Receive Date: 20050214
  Receipt Date: 20050126
  Transmission Date: 20050727
  Serious: Yes (Congenital Anomaly)
  Sender: FDA-Public Use
  Company Number: 10119

PATIENT
  Sex: Male

DRUGS (1)
  1. METHOTREXATE [Suspect]
     Indication: ABORTION
     Dosage: 100 MG 2/WK/300 MG 2/WK UNK
     Route: 065

REACTIONS (6)
  - CONGENITAL NOSE MALFORMATION [None]
  - DRUG EXPOSURE DURING PREGNANCY [None]
  - HIGH ARCHED PALATE [None]
  - LOW SET EARS [None]
  - OFF LABEL USE [None]
  - SKULL MALFORMATION [None]
